FAERS Safety Report 23570264 (Version 2)
Quarter: 2024Q2

REPORT INFORMATION
  Report Type: Spontaneous
  Country: US (occurrence: US)
  Receive Date: 20240227
  Receipt Date: 20240501
  Transmission Date: 20240715
  Serious: No
  Sender: FDA-Public Use
  Company Number: US-002147023-NVSC2024US040834

PATIENT

DRUGS (1)
  1. COSENTYX [Suspect]
     Active Substance: SECUKINUMAB
     Indication: Product used for unknown indication
     Dosage: UNK (4 SHOTS ON 4 WEEKS)
     Route: 065
     Dates: start: 202001

REACTIONS (2)
  - Tonsillolith [Unknown]
  - Product dose omission issue [Unknown]
